FAERS Safety Report 6769223-0 (Version None)
Quarter: 2010Q2

REPORT INFORMATION
  Report Type: 
  Country: None (occurrence: None)
  Receive Date: 20100604
  Receipt Date: 20100531
  Transmission Date: 20101027
  Serious: Yes (Death, Hospitalization)
  Sender: FDA-Public Use
  Company Number: 2007-158140-NL

PATIENT
  Age: 68 Year
  Sex: Female
  Weight: 64 kg

DRUGS (6)
  1. MIRTAZAPINE [Suspect]
     Indication: DEPRESSION
     Dosage: 30 MG;QD;PO
     Route: 048
     Dates: start: 20051207
  2. CYMBALTA [Suspect]
     Indication: DEPRESSION
     Dosage: QD;PO
     Route: 048
     Dates: start: 20070118
  3. TEMAZEPAM [Concomitant]
  4. EFFEXOR [Concomitant]
  5. MIRTAZAPINE [Concomitant]
  6. MIRTAZAPINE [Concomitant]

REACTIONS (5)
  - BLOOD PRESSURE SYSTOLIC INCREASED [None]
  - BRAIN OEDEMA [None]
  - CEREBRAL VENTRICLE DILATATION [None]
  - FALL [None]
  - SUBARACHNOID HAEMORRHAGE [None]
